FAERS Safety Report 20833209 (Version 4)
Quarter: 2022Q3

REPORT INFORMATION
  Report Type: Report from Study
  Country: US (occurrence: US)
  Receive Date: 20220516
  Receipt Date: 20220803
  Transmission Date: 20221027
  Serious: No
  Sender: FDA-Public Use
  Company Number: US-SAGE-2022SAGE000040

PATIENT
  Age: 30 Year
  Sex: Female

DRUGS (8)
  1. ZULRESSO [Suspect]
     Active Substance: BREXANOLONE
     Indication: Perinatal depression
     Dosage: 30 MCG/KG/HR (1.77 ML/HR), BAG 1
     Route: 042
     Dates: start: 20220312, end: 20220312
  2. ZULRESSO [Suspect]
     Active Substance: BREXANOLONE
     Dosage: 60 MCG/KG/HR (3.5 ML/HR), BAG 1
     Route: 042
     Dates: start: 20220312, end: 20220312
  3. ZULRESSO [Suspect]
     Active Substance: BREXANOLONE
     Dosage: 60 MCG/KG/HR (3.5 ML/HR), BAG 2
     Route: 042
     Dates: start: 20220312, end: 20220313
  4. ZULRESSO [Suspect]
     Active Substance: BREXANOLONE
     Dosage: 90 MCG/KG/HR (5.3 ML/HR), BAG 3
     Route: 042
     Dates: start: 20220313, end: 20220313
  5. ZULRESSO [Suspect]
     Active Substance: BREXANOLONE
     Dosage: 90 MCG/KG/HR (3.5 ML/HR), BAG 4
     Route: 042
     Dates: start: 20220313, end: 20220314
  6. ZULRESSO [Suspect]
     Active Substance: BREXANOLONE
     Dosage: 90 MCG/KG/HR (3.5 ML/HR), BAG 5
     Route: 042
     Dates: start: 20220314, end: 20220314
  7. ZULRESSO [Suspect]
     Active Substance: BREXANOLONE
     Dosage: 60 MCG/KG/HR (3.5 ML/HR), BAG 5
     Route: 042
     Dates: start: 20220314, end: 20220314
  8. ZULRESSO [Suspect]
     Active Substance: BREXANOLONE
     Dosage: 30 MCG/KG/HR (1.77 ML/HR), BAG 5
     Route: 042
     Dates: start: 20220314, end: 20220314

REACTIONS (1)
  - Drug monitoring procedure incorrectly performed [Unknown]

NARRATIVE: CASE EVENT DATE: 20220312
